FAERS Safety Report 23123458 (Version 2)
Quarter: 2023Q4

REPORT INFORMATION
  Report Type: Other
  Country: PT (occurrence: None)
  Receive Date: 20231030
  Receipt Date: 20231212
  Transmission Date: 20240110
  Serious: Yes (Death)
  Sender: FDA-Public Use
  Company Number: PT-ROCHE-3447057

PATIENT
  Age: 57 Year
  Sex: Female

DRUGS (11)
  1. HERCEPTIN [Suspect]
     Active Substance: TRASTUZUMAB
     Indication: HER2 positive breast cancer
     Dosage: LAST DOSE ON 24/OCT/2019
     Route: 058
     Dates: start: 20181031
  2. FEMARA [Suspect]
     Active Substance: LETROZOLE
     Indication: HER2 positive breast cancer
     Dosage: LAST DOSE ON 10/NOV/2020
     Route: 048
     Dates: start: 20181031
  3. ATORVASTATIN [Concomitant]
     Active Substance: ATORVASTATIN
     Dates: end: 20200615
  4. BUDESONIDE [Concomitant]
     Active Substance: BUDESONIDE
     Dates: end: 20200615
  5. FORMOTEROL [Concomitant]
     Active Substance: FORMOTEROL
     Dates: end: 20200615
  6. INSULIN HUMAN [Concomitant]
     Active Substance: INSULIN HUMAN
     Dates: end: 20200615
  7. PANTOPRAZOLE [Concomitant]
     Active Substance: PANTOPRAZOLE
     Dates: end: 20200615
  8. WARFARIN SODIUM [Concomitant]
     Active Substance: WARFARIN SODIUM
     Dates: end: 20200615
  9. ENALAPRIL [Concomitant]
     Active Substance: ENALAPRIL
     Dates: start: 20181016, end: 20200615
  10. CALCIUM [Concomitant]
     Active Substance: CALCIUM
     Dates: start: 20181031, end: 20200615
  11. MAGNESIUM [Concomitant]
     Active Substance: MAGNESIUM
     Dates: start: 20200220, end: 20200615

REACTIONS (1)
  - Pancreatic carcinoma [Fatal]

NARRATIVE: CASE EVENT DATE: 20200615
